FAERS Safety Report 7289429-4 (Version None)
Quarter: 2011Q1

REPORT INFORMATION
  Report Type: 
  Country: None (occurrence: None)
  Receive Date: 20110211
  Receipt Date: 20110208
  Transmission Date: 20110831
  Serious: Yes (Other)
  Sender: FDA-Public Use
  Company Number: US-PFIZER INC-2011029122

PATIENT

DRUGS (1)
  1. CHANTIX [Suspect]
     Dosage: UNK

REACTIONS (11)
  - DIZZINESS [None]
  - COUGH [None]
  - SYNCOPE [None]
  - NAUSEA [None]
  - WHEEZING [None]
  - EYE DISCHARGE [None]
  - AGITATION [None]
  - BACK PAIN [None]
  - CHEST PAIN [None]
  - ABDOMINAL PAIN LOWER [None]
  - EYE PRURITUS [None]
